FAERS Safety Report 9674269 (Version 2)
Quarter: 2013Q4

REPORT INFORMATION
  Report Type: Spontaneous
  Country: DK (occurrence: DK)
  Receive Date: 20131107
  Receipt Date: 20131210
  Transmission Date: 20140711
  Serious: Yes (Other)
  Sender: FDA-Public Use
  Company Number: PHHY2013DK123227

PATIENT
  Age: 41 Year
  Sex: Male
  Weight: 86 kg

DRUGS (3)
  1. MANDOLGIN RETARD [Suspect]
     Dosage: 200 MG, BID
     Route: 048
     Dates: start: 20070101
  2. SAROTEN ^LUNDBECK^ [Suspect]
     Indication: BACK PAIN
     Dosage: 10 MG, QD
     Route: 048
     Dates: start: 20050101
  3. LYRICA PFIZER [Suspect]
     Indication: BACK PAIN
     Dosage: 75 MG, (3 CAPSULES IN THE MORNING, 2 CAPSULES AT NOON AND 3 CAPSULES IN THE EVENING)
     Route: 048
     Dates: start: 20080101

REACTIONS (3)
  - Drug withdrawal syndrome [Unknown]
  - Arthralgia [Not Recovered/Not Resolved]
  - Suicidal behaviour [Not Recovered/Not Resolved]
